FAERS Safety Report 6970026 (Version 3)
Quarter: 2013Q4

REPORT INFORMATION
  Report Type: Spontaneous
  Country: US (occurrence: None)
  Receive Date: 20090408
  Receipt Date: 20131220
  Transmission Date: 20140711
  Serious: Yes (Other)
  Sender: FDA-Public Use
  Company Number: 2009S1002729

PATIENT
  Age: 42 Year
  Sex: Female

DRUGS (3)
  1. FLEET PHOSPHO-SODA [Suspect]
     Indication: COLONOSCOPY
     Dosage: 2 IN 24 HOURS
     Route: 048
     Dates: start: 20080819, end: 20080820
  2. ALDACTONE [Concomitant]
  3. TETRACYCLINE [Concomitant]

REACTIONS (6)
  - Hypersensitivity [None]
  - Nephrolithiasis [None]
  - Renal impairment [None]
  - Fatigue [None]
  - Calculus ureteric [None]
  - Ureteric obstruction [None]
